FAERS Safety Report 6942532-8 (Version None)
Quarter: 2010Q3

REPORT INFORMATION
  Report Type: 
  Country: None (occurrence: None)
  Receive Date: 20100823
  Receipt Date: 20100812
  Transmission Date: 20110219
  Serious: Yes (Hospitalization)
  Sender: FDA-Public Use
  Company Number: WAES 1006USA03046

PATIENT
  Age: 65 Year
  Sex: Female

DRUGS (19)
  1. JANUVIA [Suspect]
     Indication: TYPE 2 DIABETES MELLITUS
     Dosage: 100 MG/DAILY PO ; 50 MG/DAILY PO ; 50 MG/DAILY PO
     Route: 048
     Dates: start: 20090912, end: 20100108
  2. JANUVIA [Suspect]
     Indication: TYPE 2 DIABETES MELLITUS
     Dosage: 100 MG/DAILY PO ; 50 MG/DAILY PO ; 50 MG/DAILY PO
     Route: 048
     Dates: start: 20090109, end: 20100508
  3. JANUVIA [Suspect]
     Indication: TYPE 2 DIABETES MELLITUS
     Dosage: 100 MG/DAILY PO ; 50 MG/DAILY PO ; 50 MG/DAILY PO
     Route: 048
     Dates: start: 20090511, end: 20100521
  4. PLACEBO (UNSPECIFIED) [Suspect]
     Indication: TYPE 2 DIABETES MELLITUS
     Dosage: 1 TAB/DAILY PO
     Route: 048
     Dates: start: 20090523, end: 20090911
  5. PLACEBO BASELINE THERAPY [Suspect]
     Indication: TYPE 2 DIABETES MELLITUS
     Dosage: PO
     Route: 048
     Dates: start: 20090509, end: 20090522
  6. ALMATOL [Concomitant]
  7. ASPIRIN [Concomitant]
  8. BLOPRESS [Concomitant]
  9. CIBENOL [Concomitant]
  10. LASIX [Concomitant]
  11. LIPITOR [Concomitant]
  12. KETOPROFEN [Concomitant]
  13. MYONAL [Concomitant]
  14. NOVORAPID [Concomitant]
  15. OLMESARTAN MEDOXOMIL [Concomitant]
  16. PARIET [Concomitant]
  17. PURSENNID [Concomitant]
  18. RHYTHMY [Concomitant]
  19. WARFARIN SODIUM [Concomitant]

REACTIONS (23)
  - ASTHENIA [None]
  - ATRIAL FIBRILLATION [None]
  - AUTONOMIC NERVOUS SYSTEM IMBALANCE [None]
  - BLOOD PRESSURE DECREASED [None]
  - BLOOD PRESSURE SYSTOLIC INCREASED [None]
  - BLOOD UREA NITROGEN/CREATININE RATIO INCREASED [None]
  - C-REACTIVE PROTEIN INCREASED [None]
  - CONDITION AGGRAVATED [None]
  - DECREASED APPETITE [None]
  - DIABETIC NEUROPATHY [None]
  - DYSURIA [None]
  - FEELING OF BODY TEMPERATURE CHANGE [None]
  - GAIT DISTURBANCE [None]
  - HYPOAESTHESIA [None]
  - HYPOGLYCAEMIA [None]
  - HYPOTENSION [None]
  - IRON DEFICIENCY ANAEMIA [None]
  - LABILE BLOOD PRESSURE [None]
  - MALAISE [None]
  - MIDDLE INSOMNIA [None]
  - NEUROGENIC BLADDER [None]
  - WHEELCHAIR USER [None]
  - WHITE BLOOD CELL COUNT INCREASED [None]
